FAERS Safety Report 8112736-X (Version None)
Quarter: 2012Q1

REPORT INFORMATION
  Report Type: 
  Country: None (occurrence: None)
  Receive Date: 20120131
  Receipt Date: 20120117
  Transmission Date: 20120608
  Serious: Yes (Death, Life-Threatening, Hospitalization, Disabling, Other)
  Sender: FDA-Public Use
  Company Number: 2008AL009772

PATIENT
  Sex: Female
  Weight: 61.2356 kg

DRUGS (14)
  1. COREG [Concomitant]
  2. ACE INHIBITORS [Concomitant]
  3. ASPIRIN [Concomitant]
  4. COUMADIN [Concomitant]
  5. POTASSIUM CHLORIDE [Concomitant]
  6. DIGOXIN [Suspect]
     Dosage: 0.125 MG;QD;PO
     Route: 048
     Dates: start: 20070308, end: 20071228
  7. DARVOCET [Concomitant]
  8. LASIX [Concomitant]
  9. BETA BLOCKERS [Concomitant]
  10. ENALAPRIL MALEATE [Concomitant]
  11. ZAROXOLYN [Concomitant]
  12. DEMADEX [Concomitant]
  13. BENICAR [Concomitant]
  14. VASOTEC [Concomitant]

REACTIONS (33)
  - NERVE INJURY [None]
  - NEUROPATHY PERIPHERAL [None]
  - FAECAL INCONTINENCE [None]
  - CEREBROVASCULAR ACCIDENT [None]
  - TRICUSPID VALVE INCOMPETENCE [None]
  - ATRIAL FIBRILLATION [None]
  - GAIT DISTURBANCE [None]
  - CARDIO-RESPIRATORY ARREST [None]
  - MITRAL VALVE INCOMPETENCE [None]
  - CARDIAC MURMUR [None]
  - EXTRASYSTOLES [None]
  - PULMONARY HYPERTENSION [None]
  - DRUG DOSE OMISSION [None]
  - RENAL FAILURE CHRONIC [None]
  - ASTHENIA [None]
  - SUBARACHNOID HAEMORRHAGE [None]
  - ARTERIOSCLEROSIS CORONARY ARTERY [None]
  - ACUTE MYOCARDIAL INFARCTION [None]
  - AORTIC VALVE INCOMPETENCE [None]
  - CARDIAC FAILURE CONGESTIVE [None]
  - UPPER GASTROINTESTINAL HAEMORRHAGE [None]
  - ATELECTASIS [None]
  - AORTIC ARTERIOSCLEROSIS [None]
  - OEDEMA PERIPHERAL [None]
  - CONGESTIVE CARDIOMYOPATHY [None]
  - GASTROOESOPHAGEAL REFLUX DISEASE [None]
  - BUNDLE BRANCH BLOCK LEFT [None]
  - HYPOTENSION [None]
  - HYPERTENSION [None]
  - LEFT VENTRICULAR DYSFUNCTION [None]
  - CARDIAC FAILURE CHRONIC [None]
  - URINARY INCONTINENCE [None]
  - PEPTIC ULCER [None]
